FAERS Safety Report 6190187-5 (Version None)
Quarter: 2009Q2

REPORT INFORMATION
  Report Type: 
  Country: None (occurrence: None)
  Receive Date: 20090427
  Receipt Date: 20080529
  Transmission Date: 20091009
  Serious: Yes (Disabling)
  Sender: FDA-Public Use
  Company Number: WAES 0806USA00028

PATIENT
  Age: 6 Year
  Sex: Male
  Weight: 34.927 kg

DRUGS (2)
  1. SINGULAIR [Suspect]
     Dosage: 4 MG/DAILY/PO
     Route: 048
     Dates: start: 20070501, end: 20080101
  2. FLOVENT [Concomitant]

REACTIONS (1)
  - ANXIETY [None]
